FAERS Safety Report 21258418 (Version 1)
Quarter: 2022Q3

REPORT INFORMATION
  Report Type: Spontaneous
  Country: CA (occurrence: CA)
  Receive Date: 20220826
  Receipt Date: 20220826
  Transmission Date: 20221027
  Serious: Yes (Hospitalization)
  Sender: FDA-Public Use
  Company Number: None

PATIENT
  Age: 59 Year
  Sex: Male
  Weight: 108 kg

DRUGS (29)
  1. METHOTREXATE [Suspect]
     Active Substance: METHOTREXATE
     Indication: Acute lymphocytic leukaemia
     Dosage: 1 EVERY 12 HOURS
     Route: 037
  2. CYTARABINE [Suspect]
     Active Substance: CYTARABINE
     Indication: Acute lymphocytic leukaemia
  3. ALLOPURINOL [Concomitant]
     Active Substance: ALLOPURINOL
  4. AMLODIPINE [Concomitant]
     Active Substance: AMLODIPINE BESYLATE
  5. CALCIUM [Concomitant]
     Active Substance: CALCIUM
  6. SPRYCEL [Concomitant]
     Active Substance: DASATINIB
  7. DECADRON [Concomitant]
     Active Substance: DEXAMETHASONE
  8. FILGRASTIM [Concomitant]
     Active Substance: FILGRASTIM
  9. FLUCONAZOLE [Concomitant]
     Active Substance: FLUCONAZOLE
  10. FOLIC ACID [Concomitant]
     Active Substance: FOLIC ACID
  11. GLICLAZIDE [Concomitant]
     Active Substance: GLICLAZIDE
  12. HUMULIN NOS [Concomitant]
     Active Substance: INSULIN HUMAN
     Route: 030
  13. HYDROMORPHONE [Concomitant]
     Active Substance: HYDROMORPHONE
  14. POLYETHYLENE GLYCOL 3350 [Concomitant]
     Active Substance: POLYETHYLENE GLYCOL 3350
     Dosage: POWDER FOR SOLUTION
     Route: 048
  15. LORAZEPAM [Concomitant]
     Active Substance: LORAZEPAM
  16. METFORMIN [Concomitant]
     Active Substance: METFORMIN HYDROCHLORIDE
  17. NADOLOL [Concomitant]
     Active Substance: NADOLOL
  18. ONGLYZA [Concomitant]
     Active Substance: SAXAGLIPTIN HYDROCHLORIDE
  19. PANTOPRAZOLE [Concomitant]
     Active Substance: PANTOPRAZOLE
  20. PRAMIPEXOLE [Concomitant]
     Active Substance: PRAMIPEXOLE
  21. PROCHLORPERAZINE [Concomitant]
     Active Substance: PROCHLORPERAZINE
  22. QUETIAPINE [Concomitant]
     Active Substance: QUETIAPINE
  23. RAMIPRIL [Concomitant]
     Active Substance: RAMIPRIL
  24. ROSUVASTATIN [Concomitant]
     Active Substance: ROSUVASTATIN
     Route: 058
  25. ALBUTEROL [Concomitant]
     Active Substance: ALBUTEROL
  26. VENLAFAXINE HYDROCHLORIDE [Concomitant]
     Active Substance: VENLAFAXINE HYDROCHLORIDE
     Dosage: CAPSULE, EXTENDED RELEASE
  27. VENOFER [Concomitant]
     Active Substance: IRON SUCROSE
     Route: 042
  28. VITAMIN D [Concomitant]
     Active Substance: VITAMIN D NOS
  29. CYTARABINE [Suspect]
     Active Substance: CYTARABINE
     Indication: Acute lymphocytic leukaemia
     Dosage: 1 EVERY 12 HOURS

REACTIONS (11)
  - Acute kidney injury [Not Recovered/Not Resolved]
  - Bacteraemia [Not Recovered/Not Resolved]
  - Brain oedema [Not Recovered/Not Resolved]
  - Cerebellar syndrome [Not Recovered/Not Resolved]
  - Chorioretinitis [Not Recovered/Not Resolved]
  - Clostridium difficile infection [Not Recovered/Not Resolved]
  - Hepatotoxicity [Not Recovered/Not Resolved]
  - Neurotoxicity [Not Recovered/Not Resolved]
  - Pneumonia klebsiella [Not Recovered/Not Resolved]
  - Pyelonephritis acute [Not Recovered/Not Resolved]
  - Systemic candida [Not Recovered/Not Resolved]
